FAERS Safety Report 12334008 (Version 1)
Quarter: 2016Q2

REPORT INFORMATION
  Report Type: Spontaneous
  Country: US (occurrence: US)
  Receive Date: 20160504
  Receipt Date: 20160504
  Transmission Date: 20160815
  Serious: Yes (Hospitalization)
  Sender: FDA-Public Use
  Company Number: US-ROCHE-ITM201504IM014384

PATIENT
  Age: 66 Year
  Sex: Male
  Weight: 112.14 kg

DRUGS (2)
  1. ESBRIET [Suspect]
     Active Substance: PIRFENIDONE
     Route: 065
  2. ESBRIET [Suspect]
     Active Substance: PIRFENIDONE
     Indication: IDIOPATHIC PULMONARY FIBROSIS
     Dosage: 3 CAPSULES
     Route: 048
     Dates: start: 20150130

REACTIONS (6)
  - Gastric disorder [Recovering/Resolving]
  - Malaise [Unknown]
  - Drug intolerance [Unknown]
  - Epigastric discomfort [Recovering/Resolving]
  - Diarrhoea [Unknown]
  - Gastric polyps [Unknown]

NARRATIVE: CASE EVENT DATE: 20151013
